FAERS Safety Report 4980539-0 (Version None)
Quarter: 2006Q2

REPORT INFORMATION
  Report Type: 
  Country: None (occurrence: None)
  Receive Date: 20060424
  Receipt Date: 20060412
  Transmission Date: 20061013
  Serious: Yes (Hospitalization)
  Sender: FDA-Public Use
  Company Number: US-BRISTOL-MYERS SQUIBB COMPANY-13346010

PATIENT
  Age: 62 Year
  Sex: Female

DRUGS (16)
  1. ORENCIA [Suspect]
     Indication: RHEUMATOID ARTHRITIS
     Route: 042
     Dates: start: 20050607
  2. METHOTREXATE [Concomitant]
     Dates: start: 20020629, end: 20060407
  3. PREDNISONE [Concomitant]
     Dates: start: 20040801
  4. PRILOSEC [Concomitant]
  5. NEURONTIN [Concomitant]
     Dates: start: 20010709
  6. PROZAC [Concomitant]
     Dates: start: 20010609
  7. LOPRESSOR [Concomitant]
     Dates: start: 19950101
  8. AVAPRO [Concomitant]
     Dates: start: 20050101
  9. FOLIC ACID [Concomitant]
     Dates: start: 20020729
  10. VITAMIN B6 [Concomitant]
     Dates: start: 19950101
  11. VITAMIN E [Concomitant]
     Dates: start: 19950101
  12. ASCORBIC ACID [Concomitant]
     Dates: start: 19950101
  13. TYLENOL (CAPLET) [Concomitant]
     Dates: start: 19950705
  14. DARVOCET-N 100 [Concomitant]
     Dates: start: 20010709
  15. OMEGA-3 [Concomitant]
     Dates: start: 20050101
  16. ASPIRIN [Concomitant]
     Dates: start: 20000101

REACTIONS (4)
  - DEHYDRATION [None]
  - DIARRHOEA [None]
  - INFECTION [None]
  - PYREXIA [None]
